FAERS Safety Report 8758868 (Version 2)
Quarter: 2012Q4

REPORT INFORMATION
  Report Type: 
  Country: CA (occurrence: CA)
  Receive Date: 20120829
  Receipt Date: 20120907
  Transmission Date: 20130627
  Serious: Yes (Other)
  Sender: FDA-Public Use
  Company Number: PHHY2012CA074259

PATIENT
  Sex: Female

DRUGS (3)
  1. ACLASTA [Suspect]
     Route: 042
     Dates: start: 20080812
  2. ACLASTA [Suspect]
     Route: 042
     Dates: start: 20090810
  3. ACLASTA [Suspect]
     Route: 042
     Dates: start: 20111017

REACTIONS (4)
  - Wound infection [Not Recovered/Not Resolved]
  - Impaired healing [Not Recovered/Not Resolved]
  - Blood blister [Not Recovered/Not Resolved]
  - Wound [Not Recovered/Not Resolved]
